FAERS Safety Report 18189310 (Version 1)
Quarter: 2020Q3

REPORT INFORMATION
  Report Type: Spontaneous
  Country: US (occurrence: US)
  Receive Date: 20200824
  Receipt Date: 20200824
  Transmission Date: 20201103
  Serious: No
  Sender: FDA-Public Use
  Company Number: NVSC2020US229223

PATIENT
  Sex: Male

DRUGS (1)
  1. HYDROCORTISONE,NEOMYCIN SULFATE,POLYMYCIN B SULPHATE [Suspect]
     Active Substance: HYDROCORTISONE\NEOMYCIN SULFATE\POLYMYXIN B SULFATE
     Indication: PRODUCT USED FOR UNKNOWN INDICATION
     Dosage: UNK UNK, TID
     Route: 065
     Dates: start: 20200814, end: 20200818

REACTIONS (3)
  - Pharyngeal swelling [Unknown]
  - Skin burning sensation [Unknown]
  - Pruritus [Unknown]
